FAERS Safety Report 4752224-1 (Version None)
Quarter: 2005Q3

REPORT INFORMATION
  Report Type: 
  Country: None (occurrence: None)
  Receive Date: 20050825
  Receipt Date: 20050815
  Transmission Date: 20060218
  Serious: Yes (Other)
  Sender: FDA-Public Use
  Company Number: GB-ABBOTT-05P-167-0308390-00

PATIENT
  Age: 36 Year
  Sex: Male

DRUGS (3)
  1. CYCLOSPORINE [Suspect]
     Indication: DERMATITIS ATOPIC
     Dosage: 3.5-4 MG/KG PER DAY
     Dates: start: 19910101, end: 19910101
  2. CYCLOSPORINE [Suspect]
     Dosage: NOT REPORTED
     Dates: start: 19960101, end: 19980101
  3. CYCLOSPORINE [Suspect]
     Dosage: 3 MG/KG PER DAY
     Dates: start: 19980101, end: 20030301

REACTIONS (1)
  - LYMPHOMATOID PAPULOSIS [None]
